FAERS Safety Report 7548114-1 (Version None)
Quarter: 2011Q2

REPORT INFORMATION
  Report Type: 
  Country: None (occurrence: None)
  Receive Date: 20110615
  Receipt Date: 20110601
  Transmission Date: 20111010
  Serious: Yes (Other)
  Sender: FDA-Public Use
  Company Number: DE-RANBAXY-2011RR-45288

PATIENT
  Age: 65 Year
  Sex: Male

DRUGS (3)
  1. AZITHROMYCIN [Concomitant]
     Indication: PYREXIA
  2. FLUCONAZOLE [Suspect]
     Indication: FUNGAL INFECTION
     Dosage: UNK
     Dates: start: 20110527, end: 20110601
  3. JANUMED 50 [Concomitant]
     Indication: DIABETES MELLITUS
     Route: 048

REACTIONS (2)
  - PRURITUS [None]
  - BLISTER [None]
